FAERS Safety Report 11888702 (Version 1)
Quarter: 2016Q1

REPORT INFORMATION
  Report Type: Spontaneous
  Country: JP (occurrence: JP)
  Receive Date: 20160105
  Receipt Date: 20160105
  Transmission Date: 20160526
  Serious: Yes (Other)
  Sender: FDA-Public Use
  Company Number: JP-TEVA-623228ISR

PATIENT
  Age: 49 Year
  Sex: Male

DRUGS (5)
  1. CYTARABINE. [Suspect]
     Active Substance: CYTARABINE
     Indication: LANGERHANS^ CELL HISTIOCYTOSIS
     Dosage: 100 MG/M2 PER DAY AS A 6 H DRIP ON DAYS 1-5, 15-19, 29-33
     Route: 041
  2. PREDNISOLONE. [Suspect]
     Active Substance: PREDNISOLONE
     Indication: LANGERHANS^ CELL HISTIOCYTOSIS
     Dosage: 2 MG/KG PER DAY ON DAYS 1-28
     Route: 048
  3. PREDNISOLONE. [Suspect]
     Active Substance: PREDNISOLONE
     Dosage: 1 MG/KG PER DAY ON DAYS 29-35
     Route: 048
  4. PREDNISOLONE. [Suspect]
     Active Substance: PREDNISOLONE
     Dosage: 0.5 MG/KG PER DAY ON DAYS 36-42
     Route: 048
  5. VINCRISTINE [Suspect]
     Active Substance: VINCRISTINE
     Indication: LANGERHANS^ CELL HISTIOCYTOSIS
     Dosage: 0.05 MG/KG PER DAY ON DAY 1, 15, 29
     Route: 042

REACTIONS (1)
  - Neutropenia [Unknown]
